FAERS Safety Report 20501757 (Version 1)
Quarter: 2022Q1

REPORT INFORMATION
  Report Type: Spontaneous
  Country: US (occurrence: None)
  Receive Date: 20220221
  Receipt Date: 20220221
  Transmission Date: 20220423
  Serious: Yes (Hospitalization)
  Sender: FDA-Public Use
  Company Number: None

PATIENT
  Age: 60 Year
  Sex: Male

DRUGS (1)
  1. DIMETHYL FUMARATE\ETHYL FUMARATE [Suspect]
     Active Substance: DIMETHYL FUMARATE\ETHYL FUMARATE
     Indication: Multiple sclerosis
     Dosage: FREQUENCY : TWICE A DAY;?
     Route: 048
     Dates: start: 20190214

REACTIONS (1)
  - Spinal operation [None]

NARRATIVE: CASE EVENT DATE: 20220208
